FAERS Safety Report 19940210 (Version 1)
Quarter: 2021Q4

REPORT INFORMATION
  Report Type: Spontaneous
  Country: US (occurrence: US)
  Receive Date: 20211011
  Receipt Date: 20211011
  Transmission Date: 20220303
  Serious: No
  Sender: FDA-Public Use
  Company Number: US-BOEHRINGERINGELHEIM-2021-BI-131714

PATIENT

DRUGS (2)
  1. MOBIC [Suspect]
     Active Substance: MELOXICAM
     Indication: Product used for unknown indication
  2. NAPROXEN [Suspect]
     Active Substance: NAPROXEN
     Indication: Product used for unknown indication

REACTIONS (3)
  - Arthralgia [Recovering/Resolving]
  - Breast pain [Unknown]
  - Therapeutic response unexpected [Unknown]
